FAERS Safety Report 6145516-5 (Version None)
Quarter: 2009Q2

REPORT INFORMATION
  Report Type: 
  Country: None (occurrence: None)
  Receive Date: 20090402
  Receipt Date: 20090325
  Transmission Date: 20091009
  Serious: Yes (Hospitalization)
  Sender: FDA-Public Use
  Company Number: PHO-2008-056

PATIENT
  Age: 68 Year
  Sex: Female

DRUGS (2)
  1. PHOTOFRIN [Suspect]
     Indication: BILE DUCT CANCER
     Dosage: IV, 1 DOSE
     Route: 042
     Dates: start: 20081021
  2. PHOTOFRIN [Suspect]
     Indication: BILE DUCT CANCER
     Dosage: IV, 1 DOSE
     Route: 042
     Dates: start: 20081023

REACTIONS (1)
  - PANCREATITIS [None]
